FAERS Safety Report 9197441 (Version 1)
Quarter: 2013Q1

REPORT INFORMATION
  Report Type: Report from Study
  Country: JP (occurrence: JP)
  Receive Date: 20130328
  Receipt Date: 20130328
  Transmission Date: 20140127
  Serious: Yes (Hospitalization)
  Sender: FDA-Public Use
  Company Number: JP-GLAXOSMITHKLINE-B0672100A

PATIENT
  Age: 32 Year
  Sex: Female
  Weight: 88 kg

DRUGS (6)
  1. TYKERB [Suspect]
     Indication: BREAST CANCER
     Route: 048
     Dates: start: 20090817, end: 20090825
  2. TYKERB [Suspect]
     Indication: BREAST CANCER
     Route: 048
     Dates: start: 20090826, end: 20090917
  3. XELODA [Suspect]
     Route: 048
     Dates: start: 20090817, end: 20090825
  4. XELODA [Suspect]
     Route: 048
     Dates: start: 20090826, end: 20090917
  5. ZOMETA [Concomitant]
     Indication: METASTASES TO BONE
     Route: 042
     Dates: end: 20091205
  6. LEUPRORELIN ACETATE [Concomitant]
     Indication: BREAST CANCER
     Route: 058
     Dates: start: 20090818, end: 20090917

REACTIONS (7)
  - Cholangitis [Recovering/Resolving]
  - Metastases to central nervous system [Not Recovered/Not Resolved]
  - Convulsion [Unknown]
  - Diarrhoea [Recovering/Resolving]
  - Vomiting [Recovering/Resolving]
  - Pyrexia [Unknown]
  - Hepatic function abnormal [Unknown]
